FAERS Safety Report 11533309 (Version 1)
Quarter: 2015Q3

REPORT INFORMATION
  Report Type: Spontaneous
  Country: US (occurrence: US)
  Receive Date: 20150921
  Receipt Date: 20150921
  Transmission Date: 20151125
  Serious: No
  Sender: FDA-Public Use
  Company Number: US-ALLERGAN-1420848US

PATIENT
  Sex: Female

DRUGS (1)
  1. LASTACAFT [Suspect]
     Active Substance: ALCAFTADINE
     Indication: HYPERSENSITIVITY
     Dosage: 2 GTT, UNK
     Route: 047
     Dates: start: 20140917, end: 20140919

REACTIONS (5)
  - Influenza like illness [Unknown]
  - Abnormal behaviour [Unknown]
  - Lethargy [Unknown]
  - Adverse event [Unknown]
  - Nausea [Unknown]
